FAERS Safety Report 9921216 (Version 1)
Quarter: 2014Q1

REPORT INFORMATION
  Report Type: Spontaneous
  Country: US (occurrence: None)
  Receive Date: 20140221
  Receipt Date: 20140221
  Transmission Date: 20141002
  Serious: Yes (Other)
  Sender: FDA-Public Use
  Company Number: None

PATIENT
  Age: 67 Year
  Sex: Female

DRUGS (5)
  1. ARIMIDEX [Suspect]
     Indication: BREAST CANCER
     Route: 048
     Dates: start: 20140101, end: 20140216
  2. ASPIRIN [Concomitant]
  3. NITROGLYCERIN [Concomitant]
  4. PRILOSEC [Concomitant]
  5. PROBIOTIC ACIDOPHILUS [Concomitant]

REACTIONS (2)
  - Pain in extremity [None]
  - Back pain [None]
